FAERS Safety Report 4330169-9 (Version None)
Quarter: 2004Q1

REPORT INFORMATION
  Report Type: 
  Country: None (occurrence: None)
  Receive Date: 20040329
  Receipt Date: 20040316
  Transmission Date: 20041129
  Serious: Yes (Other)
  Sender: FDA-Public Use
  Company Number: US-JNJFOC-20040304038

PATIENT
  Age: 28 Year
  Sex: Female
  Weight: 68.0396 kg

DRUGS (7)
  1. DURAGESIC [Suspect]
     Indication: PAIN
     Dosage: 75 UG/HR, 1 IN 72 HOUR, TRANSDERMAL
     Route: 062
     Dates: start: 20030401, end: 20040316
  2. WELLBUTRIN (BUPROPION HYDROCHLORIDE) CAPLET [Concomitant]
  3. REMICADE [Concomitant]
  4. OXYCODONE (OXYCODONE) TABLETS [Concomitant]
  5. ORAL CONTRACEPTIVES (ORAL CONTRACEPTIVE NOS) TABLETS [Concomitant]
  6. CIPRO (CIPROFLOXACIN HYDROCHLORIDE) CAPLET [Concomitant]
  7. PRILOSEC [Concomitant]

REACTIONS (5)
  - AMNESIA [None]
  - DEPRESSED LEVEL OF CONSCIOUSNESS [None]
  - FATIGUE [None]
  - FEELING COLD [None]
  - ROAD TRAFFIC ACCIDENT [None]
